FAERS Safety Report 17306693 (Version 13)
Quarter: 2022Q2

REPORT INFORMATION
  Report Type: Spontaneous
  Country: IT (occurrence: IT)
  Receive Date: 20200123
  Receipt Date: 20220512
  Transmission Date: 20220720
  Serious: Yes (Death, Life-Threatening, Hospitalization, Other)
  Sender: FDA-Public Use
  Company Number: IT-CELLTRION INC.-2020IT018079

PATIENT

DRUGS (40)
  1. RITUXIMAB [Suspect]
     Active Substance: RITUXIMAB
     Indication: Chronic inflammatory demyelinating polyradiculoneuropathy
     Dosage: UNK (2 WEEKS LATER)
     Route: 065
     Dates: start: 2018
  2. RITUXIMAB [Suspect]
     Active Substance: RITUXIMAB
     Dosage: 1000 MG
     Route: 065
     Dates: start: 2018
  3. RITUXIMAB [Suspect]
     Active Substance: RITUXIMAB
     Dosage: 2 DOSAGES 1000 MG
     Dates: start: 201806
  4. RITUXIMAB [Suspect]
     Active Substance: RITUXIMAB
     Dosage: 1000 MG (2 DOSES) FIRST DOSE AND THE MAN RECEIVED SECOND DOSE TWO WEEKS LATER)
     Route: 065
     Dates: start: 201806
  5. RITUXIMAB [Suspect]
     Active Substance: RITUXIMAB
     Dosage: UNK, SECOND DOSE AFTER 2 WEEKS
     Route: 065
     Dates: start: 2018
  6. RITUXIMAB [Suspect]
     Active Substance: RITUXIMAB
     Dosage: UNK (2 WEEKS LATER)
     Route: 065
  7. PREDNISONE [Suspect]
     Active Substance: PREDNISONE
     Indication: Chronic inflammatory demyelinating polyradiculoneuropathy
     Dosage: 50 MILLIGRAM, QD / 50 MG, QD
     Route: 048
  8. PREDNISONE [Suspect]
     Active Substance: PREDNISONE
     Dosage: 50 MG, QD
     Route: 048
  9. PREDNISONE [Suspect]
     Active Substance: PREDNISONE
     Dosage: 50 MG
  10. LAMIVUDINE [Suspect]
     Active Substance: LAMIVUDINE
     Indication: Product used for unknown indication
     Dosage: 200 MG, TID
     Route: 065
  11. LAMIVUDINE [Suspect]
     Active Substance: LAMIVUDINE
     Dosage: 100 MG, TID
     Route: 065
  12. LAMIVUDINE [Suspect]
     Active Substance: LAMIVUDINE
     Dosage: 100 MG THREE TIMES A DAY
     Route: 065
  13. LAMIVUDINE [Suspect]
     Active Substance: LAMIVUDINE
     Dosage: 100 MG THREE TIMES A DAY
     Route: 065
  14. HUMAN IMMUNOGLOBULIN G [Suspect]
     Active Substance: HUMAN IMMUNOGLOBULIN G
     Indication: Chronic inflammatory demyelinating polyradiculoneuropathy
     Dosage: UNK
     Route: 042
  15. GANCICLOVIR [Suspect]
     Active Substance: GANCICLOVIR
     Indication: Cytomegalovirus hepatitis
     Dosage: 350 MG, Q12H (EVERY 12 HOURS)
     Route: 042
     Dates: start: 2018
  16. NALOXONE HYDROCHLORIDE\OXYCODONE HYDROCHLORIDE [Suspect]
     Active Substance: NALOXONE HYDROCHLORIDE\OXYCODONE HYDROCHLORIDE
     Indication: Chronic inflammatory demyelinating polyradiculoneuropathy
     Dosage: OXYCODONE/NALOXONE 10/5MG TWICE DAILY (EVERY 12 HOURS)
     Route: 048
     Dates: end: 2018
  17. NALOXONE HYDROCHLORIDE\OXYCODONE HYDROCHLORIDE [Suspect]
     Active Substance: NALOXONE HYDROCHLORIDE\OXYCODONE HYDROCHLORIDE
     Indication: Product used for unknown indication
     Dosage: OXYCODONE/NALOXONE 10/5MG TWICE DAILY
     Route: 048
     Dates: start: 2018, end: 2018
  18. CANDESARTAN [Concomitant]
     Active Substance: CANDESARTAN
     Indication: Hypertension
     Dosage: 8 MG, QD
     Route: 048
  19. TENOFOVIR [Concomitant]
     Active Substance: TENOFOVIR
     Indication: Product used for unknown indication
     Dosage: 245 MG, QD / 245 MG
     Route: 065
  20. ALENDRONIC ACID [Concomitant]
     Active Substance: ALENDRONIC ACID
     Indication: Chronic inflammatory demyelinating polyradiculoneuropathy
     Dosage: 70 MG, QW (EVERY 1 WEEK)
     Route: 048
  21. ALENDRONIC ACID [Concomitant]
     Active Substance: ALENDRONIC ACID
     Indication: Product used for unknown indication
     Dosage: 70 MG
     Route: 048
  22. CANDESTAN [Concomitant]
     Indication: Hypertension
     Dosage: 8 MG, QD
     Route: 048
  23. CANDESTAN [Concomitant]
     Indication: Product used for unknown indication
  24. LEVOTHYROXINE [Concomitant]
     Active Substance: LEVOTHYROXINE
     Indication: Chronic inflammatory demyelinating polyradiculoneuropathy
     Dosage: 75 MICROGRAM, QD / 75 UG, QD
     Route: 048
  25. LEVOTHYROXINE [Concomitant]
     Active Substance: LEVOTHYROXINE
     Indication: Product used for unknown indication
     Dosage: 75 MCG/ML
     Route: 048
  26. ALLOPURINOL [Concomitant]
     Active Substance: ALLOPURINOL
     Indication: Chronic inflammatory demyelinating polyradiculoneuropathy
     Dosage: 300 MILLIGRAM, QD
     Route: 048
  27. ALLOPURINOL [Concomitant]
     Active Substance: ALLOPURINOL
     Indication: Product used for unknown indication
     Dosage: 300 MG, QD
     Route: 048
  28. RANITIDINE [Concomitant]
     Active Substance: RANITIDINE
     Indication: Product used for unknown indication
     Dosage: 300 MILLIGRAM, QD / 300 MG, QD
     Route: 048
  29. RANITIDINE [Concomitant]
     Active Substance: RANITIDINE
     Dosage: 300 MG, QD
     Route: 048
  30. NALOXONE HYDROCHLORIDE\OXYCODONE HYDROCHLORIDE [Concomitant]
     Active Substance: NALOXONE HYDROCHLORIDE\OXYCODONE HYDROCHLORIDE
     Indication: Chronic inflammatory demyelinating polyradiculoneuropathy
     Dosage: 10/5MG TWICE DAILY
     Route: 048
     Dates: start: 2018
  31. NALOXONE HYDROCHLORIDE\OXYCODONE HYDROCHLORIDE [Concomitant]
     Active Substance: NALOXONE HYDROCHLORIDE\OXYCODONE HYDROCHLORIDE
     Indication: Product used for unknown indication
  32. OXYCODONE [Concomitant]
     Active Substance: OXYCODONE
     Indication: Chronic inflammatory demyelinating polyradiculoneuropathy
     Dosage: 10 MG, BID
     Route: 048
  33. OXYCODONE [Concomitant]
     Active Substance: OXYCODONE
     Dosage: 10 MG
     Route: 065
  34. OXYCODONE [Concomitant]
     Active Substance: OXYCODONE
     Dosage: 10 MG, BID
     Route: 048
     Dates: start: 2018
  35. PIPERACILLIN SODIUM\TAZOBACTAM SODIUM [Concomitant]
     Active Substance: PIPERACILLIN SODIUM\TAZOBACTAM SODIUM
     Indication: Antibiotic therapy
     Dosage: 4.5 G, Q8H (EVERY 8 HOUR)
     Route: 042
     Dates: start: 2018
  36. PIPERACILLIN SODIUM\TAZOBACTAM SODIUM [Concomitant]
     Active Substance: PIPERACILLIN SODIUM\TAZOBACTAM SODIUM
     Indication: Product used for unknown indication
  37. NALOXONE [Concomitant]
     Active Substance: NALOXONE
     Indication: Chronic inflammatory demyelinating polyradiculoneuropathy
     Dosage: 5 MG, BID
     Route: 048
  38. NALOXONE [Concomitant]
     Active Substance: NALOXONE
     Dosage: 5 MG
     Route: 065
  39. NALOXONE [Concomitant]
     Active Substance: NALOXONE
     Dosage: 5 MG, BID
     Route: 048
     Dates: start: 2018
  40. GANCICLOVIR [Concomitant]
     Active Substance: GANCICLOVIR
     Indication: Cytomegalovirus hepatitis
     Dosage: 350 MG, Q12H
     Route: 042

REACTIONS (18)
  - Blood lactic acid increased [Fatal]
  - Hepatic cirrhosis [Fatal]
  - Acute on chronic liver failure [Fatal]
  - Cholecystitis [Fatal]
  - Metabolic acidosis [Fatal]
  - Hepatic encephalopathy [Fatal]
  - Acute hepatic failure [Fatal]
  - Hepatic failure [Fatal]
  - Hepatitis B reactivation [Fatal]
  - Multiple organ dysfunction syndrome [Fatal]
  - International normalised ratio increased [Unknown]
  - Jaundice [Recovering/Resolving]
  - Ascites [Unknown]
  - Chromaturia [Recovering/Resolving]
  - Nausea [Recovering/Resolving]
  - Diarrhoea [Recovering/Resolving]
  - Product use in unapproved indication [Unknown]
  - Off label use [Unknown]

NARRATIVE: CASE EVENT DATE: 20180101
